FAERS Safety Report 4976244-7 (Version None)
Quarter: 2006Q2

REPORT INFORMATION
  Report Type: 
  Country: None (occurrence: None)
  Receive Date: 20060412
  Receipt Date: 20060329
  Transmission Date: 20061013
  Serious: Yes (Death, Hospitalization)
  Sender: FDA-Public Use
  Company Number: DEU-2006-0002119

PATIENT
  Age: 85 Year
  Sex: Female
  Weight: 61 kg

DRUGS (6)
  1. HYDROMORPHONE HCL CR [Suspect]
     Indication: CANCER PAIN
     Dosage: 8 MG, BID, ORAL
     Route: 048
     Dates: start: 20060114, end: 20060120
  2. PALLADON  HARTKAPSELN                 (HYDROMORPHONE HYDROCHLORIDE) [Suspect]
     Indication: CANCER PAIN
     Dosage: 8 MG, BID, ORAL
     Route: 048
     Dates: start: 20060114, end: 20060120
  3. NOVALGIN [Concomitant]
  4. DOXEPIN HCL [Concomitant]
  5. MOVICOL [Concomitant]
  6. METOCLOPRAMIDE [Concomitant]

REACTIONS (2)
  - ILEUS [None]
  - MULTI-ORGAN FAILURE [None]
